FAERS Safety Report 21077938 (Version 1)
Quarter: 2022Q3

REPORT INFORMATION
  Report Type: Report from Study
  Country: FR (occurrence: FR)
  Receive Date: 20220713
  Receipt Date: 20220713
  Transmission Date: 20221027
  Serious: Yes (Hospitalization, Other)
  Sender: FDA-Public Use
  Company Number: FR-TAKEDA-FR201808529

PATIENT
  Sex: Male

DRUGS (12)
  1. IDURSULFASE [Suspect]
     Active Substance: IDURSULFASE
     Indication: Mucopolysaccharidosis II
     Dosage: 0.57 MILLIGRAM/KILOGRAM, 1/WEEK
     Route: 042
     Dates: start: 2012, end: 201411
  2. IDURSULFASE [Suspect]
     Active Substance: IDURSULFASE
     Dosage: 0.69 MILLIGRAM/KILOGRAM, 1/WEEK
     Route: 042
     Dates: start: 201411, end: 20181107
  3. IDURSULFASE [Suspect]
     Active Substance: IDURSULFASE
     Dosage: 0.52 MILLIGRAM/KILOGRAM, 1/WEEK
     Route: 042
     Dates: start: 20181108
  4. SINGULAIR [Concomitant]
     Active Substance: MONTELUKAST SODIUM
     Dosage: UNK
     Route: 065
  5. MEQUITAZINE [Concomitant]
     Active Substance: MEQUITAZINE
     Dosage: UNK
     Route: 065
     Dates: end: 20171031
  6. EBASTINE [Concomitant]
     Active Substance: EBASTINE
     Dosage: UNK
     Route: 065
  7. Celestene [Concomitant]
     Indication: Premedication
     Dosage: UNK
     Route: 065
     Dates: start: 2011, end: 2011
  8. NASONEX [Concomitant]
     Active Substance: MOMETASONE FUROATE
     Indication: Respiratory disorder
     Dosage: UNK
     Route: 065
     Dates: start: 20151117, end: 20151217
  9. SODIUM FEREDETATE [Concomitant]
     Active Substance: SODIUM FEREDETATE
     Dosage: UNK
     Route: 065
     Dates: start: 20170427
  10. TOBRAMYCIN [Concomitant]
     Active Substance: TOBRAMYCIN
     Indication: Respiratory disorder
     Dosage: UNK
     Route: 065
     Dates: start: 20171128
  11. PULMICORT TURBUHALER [Concomitant]
     Active Substance: BUDESONIDE
     Dosage: UNK
     Route: 065
     Dates: start: 20171128
  12. MELATONIN [Concomitant]
     Active Substance: MELATONIN
     Indication: Sleep disorder
     Dosage: UNK
     Route: 065
     Dates: start: 20180222

REACTIONS (1)
  - Craniocerebral injury [Recovered/Resolved]

NARRATIVE: CASE EVENT DATE: 20170313
